FAERS Safety Report 8503305-8 (Version None)
Quarter: 2012Q3

REPORT INFORMATION
  Report Type: 
  Country: None (occurrence: None)
  Receive Date: 20120711
  Receipt Date: 20120704
  Transmission Date: 20120928
  Serious: No
  Sender: FDA-Public Use
  Company Number: US-PFIZER INC-2008023111

PATIENT
  Sex: Female
  Weight: 65 kg

DRUGS (8)
  1. COUMADIN [Concomitant]
     Indication: DEEP VEIN THROMBOSIS
     Dosage: 8 MG, 1X/DAY
     Route: 048
  2. PREVACID [Concomitant]
     Indication: GASTRIC DISORDER
     Dosage: UNK, 1X/DAY
     Route: 048
  3. REGLAN [Concomitant]
     Dosage: 10 MG, EVERY NIGHT, 1X/DAY
     Route: 048
  4. CALAN [Suspect]
     Indication: SINUS TACHYCARDIA
     Dosage: 240 MG, DAILY
     Route: 048
     Dates: start: 20080116
  5. CALAN [Suspect]
     Indication: HYPERTENSION
     Dosage: 180 MG, UNK
     Route: 048
     Dates: start: 20070112
  6. LIPITOR [Concomitant]
     Dosage: 10 MG, 1X/DAY
     Route: 048
  7. CALAN [Suspect]
     Indication: HEART RATE INCREASED
     Dosage: 120 MG, DAILY
     Route: 048
     Dates: start: 20080311
  8. VESICARE [Concomitant]
     Dosage: 5 MG, 1X/DAY
     Route: 048

REACTIONS (2)
  - DIZZINESS [None]
  - HEART RATE INCREASED [None]
